FAERS Safety Report 13668330 (Version 1)
Quarter: 2017Q2

REPORT INFORMATION
  Report Type: Report from Study
  Country: AU (occurrence: AU)
  Receive Date: 20170620
  Receipt Date: 20170620
  Transmission Date: 20170830
  Serious: Yes (Hospitalization, Other)
  Sender: FDA-Public Use
  Company Number: PHHY2016AU089640

PATIENT
  Sex: Female

DRUGS (1)
  1. SANDOSTATIN LAR DEPOT [Suspect]
     Active Substance: OCTREOTIDE ACETATE
     Indication: NEUROENDOCRINE TUMOUR
     Dosage: 30 MG, UNK
     Route: 030

REACTIONS (7)
  - Abdominal pain upper [Recovering/Resolving]
  - Liver disorder [Recovered/Resolved]
  - Pallor [Unknown]
  - Skin depigmentation [Not Recovered/Not Resolved]
  - Pain [Recovered/Resolved]
  - Malignant neoplasm progression [Recovering/Resolving]
  - Malaise [Recovered/Resolved]
